FAERS Safety Report 9133648 (Version 1)
Quarter: 2013Q1

REPORT INFORMATION
  Report Type: Spontaneous
  Country: US (occurrence: US)
  Receive Date: 20130126
  Receipt Date: 20130126
  Transmission Date: 20140127
  Serious: No
  Sender: FDA-Public Use
  Company Number: US-009507513-1301USA009377

PATIENT
  Sex: Male
  Weight: 99.77 kg

DRUGS (1)
  1. PEGINTRON [Suspect]
     Indication: HEPATITIS C
     Dosage: 150 MICROGRAM, QW
     Route: 058

REACTIONS (4)
  - Weight decreased [Unknown]
  - Headache [Unknown]
  - Irritability [Unknown]
  - Decreased appetite [Unknown]
